FAERS Safety Report 12528649 (Version 2)
Quarter: 2017Q3

REPORT INFORMATION
  Report Type: Spontaneous
  Country: US (occurrence: US)
  Receive Date: 20160705
  Receipt Date: 20170712
  Transmission Date: 20171127
  Serious: Yes (Hospitalization)
  Sender: FDA-Public Use
  Company Number: US-SA-2015SA215359

PATIENT
  Age: 67 Year
  Sex: Male
  Weight: 83.56 kg

DRUGS (3)
  1. JEVTANA [Suspect]
     Active Substance: CABAZITAXEL
     Indication: PROSTATE CANCER
     Dosage: 20 MG/M2 EVERY 3 WEEKS
     Route: 042
     Dates: start: 20151130, end: 20151130
  2. JEVTANA [Suspect]
     Active Substance: CABAZITAXEL
     Indication: PROSTATE CANCER
     Dosage: 20 MG/M2 EVERY 3 WEEKS
     Route: 042
     Dates: start: 20160102, end: 20160102
  3. MITOXANTRONE [Suspect]
     Active Substance: MITOXANTRONE HYDROCHLORIDE
     Indication: PROSTATE CANCER
     Route: 042
     Dates: start: 20151130

REACTIONS (1)
  - Febrile neutropenia [Recovered/Resolved]

NARRATIVE: CASE EVENT DATE: 20151205
